FAERS Safety Report 15774933 (Version 3)
Quarter: 2019Q1

REPORT INFORMATION
  Report Type: Spontaneous
  Country: IL (occurrence: IL)
  Receive Date: 20181230
  Receipt Date: 20190118
  Transmission Date: 20190417
  Serious: Yes (Other)
  Sender: FDA-Public Use
  Company Number: IL-ROCHE-2236938

PATIENT
  Age: 68 Year
  Sex: Female

DRUGS (3)
  1. AVASTIN [Suspect]
     Active Substance: BEVACIZUMAB
     Indication: OVARIAN CANCER
     Route: 065
  2. TAXOL [Suspect]
     Active Substance: PACLITAXEL
     Indication: OVARIAN CANCER
     Route: 065
  3. CARBOPLATIN. [Suspect]
     Active Substance: CARBOPLATIN
     Indication: OVARIAN CANCER
     Route: 065

REACTIONS (2)
  - Neuropathy peripheral [Recovered/Resolved]
  - Bone marrow toxicity [Recovered/Resolved]
